FAERS Safety Report 4494353-6 (Version None)
Quarter: 2004Q4

REPORT INFORMATION
  Report Type: 
  Country: None (occurrence: None)
  Receive Date: 20041105
  Receipt Date: 20041027
  Transmission Date: 20050328
  Serious: Yes (Other)
  Sender: FDA-Public Use
  Company Number: DE-BRISTOL-MYERS SQUIBB COMPANY-12747846

PATIENT
  Age: 46 Year
  Sex: Male

DRUGS (3)
  1. DIDANOSINE [Suspect]
     Indication: HIV INFECTION
  2. LAMIVUDINE [Suspect]
     Indication: HIV INFECTION
  3. LOPINAVIR [Suspect]
     Indication: HIV INFECTION

REACTIONS (2)
  - PSORIASIS [None]
  - PSORIATIC ARTHROPATHY [None]
